FAERS Safety Report 18102423 (Version 2)
Quarter: 2020Q3

REPORT INFORMATION
  Report Type: Report from Study
  Country: US (occurrence: US)
  Receive Date: 20200803
  Receipt Date: 20200826
  Transmission Date: 20201103
  Serious: Yes (Hospitalization, Other)
  Sender: FDA-Public Use
  Company Number: US-GILEAD-2020-0486706

PATIENT
  Age: 58 Year
  Sex: Female

DRUGS (5)
  1. VENTAVIS [Concomitant]
     Active Substance: ILOPROST
  2. TADALAFIL. [Concomitant]
     Active Substance: TADALAFIL
  3. XARELTO [Concomitant]
     Active Substance: RIVAROXABAN
  4. DILTIAZEM. [Concomitant]
     Active Substance: DILTIAZEM
  5. AMBRISENTAN [Suspect]
     Active Substance: AMBRISENTAN
     Indication: PULMONARY HYPERTENSION
     Dosage: 10 MG, QD
     Route: 065
     Dates: start: 20170112

REACTIONS (3)
  - Pneumonia [Unknown]
  - COVID-19 [Unknown]
  - Malaise [Unknown]

NARRATIVE: CASE EVENT DATE: 20200719
